FAERS Safety Report 22149367 (Version 2)
Quarter: 2023Q2

REPORT INFORMATION
  Report Type: Spontaneous
  Country: US (occurrence: None)
  Receive Date: 20230329
  Receipt Date: 20230412
  Transmission Date: 20230721
  Serious: No
  Sender: FDA-Public Use
  Company Number: 2023A056355

PATIENT
  Age: 64 Year
  Sex: Female

DRUGS (2)
  1. SYMBICORT [Suspect]
     Active Substance: BUDESONIDE\FORMOTEROL FUMARATE DIHYDRATE
     Indication: Chronic obstructive pulmonary disease
     Dosage: 160 MCG, VIA INHALATION, 2 PUFFS 2 TIMES A DAY
     Route: 055
  2. SYMBICORT [Suspect]
     Active Substance: BUDESONIDE\FORMOTEROL FUMARATE DIHYDRATE
     Indication: Dyspnoea
     Dosage: 160 MCG, VIA INHALATION, 2 PUFFS 2 TIMES A DAY
     Route: 055

REACTIONS (4)
  - Illness [Unknown]
  - Product dose omission issue [Unknown]
  - Device delivery system issue [Unknown]
  - Off label use [Unknown]
